FAERS Safety Report 10392568 (Version 2)
Quarter: 2014Q3

REPORT INFORMATION
  Report Type: Spontaneous
  Country: US (occurrence: US)
  Receive Date: 20140819
  Receipt Date: 20140909
  Transmission Date: 20150326
  Serious: No
  Sender: FDA-Public Use
  Company Number: US-PFIZER INC-2014229603

PATIENT
  Age: 13 Year
  Sex: Male
  Weight: 45.8 kg

DRUGS (1)
  1. IBUPROFEN. [Suspect]
     Active Substance: IBUPROFEN
     Dosage: UNK
     Route: 048
     Dates: start: 20140609

REACTIONS (3)
  - Pyrexia [Unknown]
  - Abdominal pain upper [Unknown]
  - Headache [Unknown]
